FAERS Safety Report 7220015-8 (Version None)
Quarter: 2011Q1

REPORT INFORMATION
  Report Type: 
  Country: None (occurrence: None)
  Receive Date: 20110111
  Receipt Date: 20100924
  Transmission Date: 20110831
  Serious: Yes (Other)
  Sender: FDA-Public Use
  Company Number: US-PFIZER INC-2010125421

PATIENT
  Sex: Female

DRUGS (3)
  1. NEXIUM [Suspect]
     Dosage: UNK
     Route: 048
  2. TOPROL-XL [Suspect]
     Dosage: UNK
     Route: 048
  3. TENORMIN [Suspect]
     Route: 048

REACTIONS (3)
  - BREAST CANCER [None]
  - DRUG INEFFECTIVE [None]
  - MALAISE [None]
